FAERS Safety Report 9115771 (Version 1)
Quarter: 2013Q1

REPORT INFORMATION
  Report Type: Spontaneous
  Country: IT (occurrence: IT)
  Receive Date: 20130224
  Receipt Date: 20130224
  Transmission Date: 20140127
  Serious: Yes (Life-Threatening)
  Sender: FDA-Public Use
  Company Number: IT-TEVA-387678ISR

PATIENT
  Age: 77 Year
  Sex: Male
  Weight: 71 kg

DRUGS (1)
  1. CEFTRIAXONE RATIOPHARM [Suspect]
     Indication: BRONCHOPNEUMOPATHY
     Dosage: 2 GRAM DAILY;
     Route: 041
     Dates: start: 20130116, end: 20130116

REACTIONS (4)
  - Hyperaemia [Recovered/Resolved]
  - Cough [Recovered/Resolved]
  - Pruritus generalised [Recovered/Resolved]
  - Dyspnoea [Recovered/Resolved]
